FAERS Safety Report 6498833-3 (Version None)
Quarter: 2009Q4

REPORT INFORMATION
  Report Type: 
  Country: None (occurrence: None)
  Receive Date: 20091127
  Receipt Date: 20081002
  Transmission Date: 20100525
  Serious: No
  Sender: FDA-Public Use
  Company Number: 280035

PATIENT
  Age: 70 Year
  Sex: Male

DRUGS (1)
  1. NOVOLOG [Suspect]
     Indication: INSULIN-REQUIRING TYPE 2 DIABETES MELLITUS
     Dosage: 22 LU, UNK, SUBCUTANEOUS
     Route: 058

REACTIONS (1)
  - INJECTION SITE HAEMATOMA [None]
